FAERS Safety Report 19754571 (Version 1)
Quarter: 2021Q3

REPORT INFORMATION
  Report Type: Spontaneous
  Country: US (occurrence: US)
  Receive Date: 20210827
  Receipt Date: 20210827
  Transmission Date: 20211014
  Serious: Yes (Hospitalization)
  Sender: FDA-Public Use
  Company Number: None

PATIENT
  Age: 87 Year
  Sex: Male
  Weight: 76.05 kg

DRUGS (8)
  1. VITAMIN C [Concomitant]
     Active Substance: ASCORBIC ACID
  2. OMEGA 3 [Concomitant]
     Active Substance: OMEGA-3 FATTY ACIDS
  3. VIT D [Concomitant]
     Active Substance: VITAMIN D NOS
  4. AMLODIPINE [Concomitant]
     Active Substance: AMLODIPINE BESYLATE
  5. ATOVASTATIN [Concomitant]
     Active Substance: ATORVASTATIN
  6. MULTIVITAMIN [Concomitant]
     Active Substance: VITAMINS
  7. FINASTERIDE. [Suspect]
     Active Substance: FINASTERIDE
     Indication: PROSTATOMEGALY
     Dosage: ?          QUANTITY:1 TABLET(S);?
     Route: 048
     Dates: start: 20201106, end: 20210121
  8. QUETIAPINE. [Concomitant]
     Active Substance: QUETIAPINE

REACTIONS (13)
  - Anger [None]
  - Asthenia [None]
  - Blood sodium increased [None]
  - Mental disorder [None]
  - Abnormal behaviour [None]
  - Platelet count decreased [None]
  - Thrombocytopenia [None]
  - Dyskinesia [None]
  - Internal haemorrhage [None]
  - Delirium [None]
  - Haemoglobin decreased [None]
  - Cerebrovascular accident [None]
  - Faeces discoloured [None]

NARRATIVE: CASE EVENT DATE: 20201106
